FAERS Safety Report 7658620-7 (Version None)
Quarter: 2011Q3

REPORT INFORMATION
  Report Type: 
  Country: None (occurrence: None)
  Receive Date: 20110805
  Receipt Date: 20110728
  Transmission Date: 20111222
  Serious: Yes (Hospitalization)
  Sender: FDA-Public Use
  Company Number: US-BRISTOL-MYERS SQUIBB COMPANY-15932544

PATIENT
  Age: 64 Year
  Sex: Male
  Weight: 91 kg

DRUGS (5)
  1. COUMADIN [Suspect]
  2. WARFARIN SODIUM [Suspect]
     Dosage: FILLED IN AUG08
  3. ASPIRIN [Concomitant]
  4. INDOMETHACIN [Concomitant]
  5. FLECAINIDE ACETATE [Concomitant]

REACTIONS (2)
  - THROMBOSIS [None]
  - ATRIAL FIBRILLATION [None]
